FAERS Safety Report 5804128-0 (Version None)
Quarter: 2008Q3

REPORT INFORMATION
  Report Type: 
  Country: None (occurrence: None)
  Receive Date: 20080702
  Receipt Date: 20070924
  Transmission Date: 20090109
  Serious: Yes (Other)
  Sender: FDA-Public Use
  Company Number: HQWYE332826SEP07

PATIENT
  Age: 60 Year
  Sex: Male
  Weight: 58.11 kg

DRUGS (1)
  1. IBUPROFEN TABLETS [Suspect]
     Indication: ARTHRALGIA
     Dosage: 2 CAPLETS ONE TIME, ORAL
     Route: 048
     Dates: start: 20070925, end: 20070925

REACTIONS (6)
  - DIARRHOEA [None]
  - DIZZINESS [None]
  - HYPERHIDROSIS [None]
  - PRURITUS GENERALISED [None]
  - URTICARIA [None]
  - VISION BLURRED [None]
